FAERS Safety Report 10422453 (Version 2)
Quarter: 2014Q4

REPORT INFORMATION
  Report Type: Spontaneous
  Country: AU (occurrence: AU)
  Receive Date: 20140901
  Receipt Date: 20141001
  Transmission Date: 20150528
  Serious: Yes (Death, Other)
  Sender: FDA-Public Use
  Company Number: PHHY2014AU109286

PATIENT
  Age: 67 Year
  Sex: Female
  Weight: 67 kg

DRUGS (3)
  1. AFINITOR [Suspect]
     Active Substance: EVEROLIMUS
     Indication: BREAST CANCER METASTATIC
     Route: 048
  2. DENOSUMAB [Concomitant]
     Active Substance: DENOSUMAB
  3. EXEMESTANE. [Concomitant]
     Active Substance: EXEMESTANE

REACTIONS (10)
  - Chest discomfort [Unknown]
  - Cyanosis [Unknown]
  - Stomatitis [Unknown]
  - Fatigue [Unknown]
  - Hepatomegaly [Fatal]
  - Dyspnoea [Unknown]
  - Wheezing [Unknown]
  - Malignant neoplasm progression [Fatal]
  - Pneumonia [Fatal]
  - Respiratory disorder [Unknown]

NARRATIVE: CASE EVENT DATE: 20140201
